FAERS Safety Report 4669096-6 (Version None)
Quarter: 2005Q2

REPORT INFORMATION
  Report Type: 
  Country: None (occurrence: None)
  Receive Date: 20050519
  Receipt Date: 20050511
  Transmission Date: 20051028
  Serious: Yes (Life-Threatening, Hospitalization, Other)
  Sender: FDA-Public Use
  Company Number: 2005-05-0626

PATIENT
  Age: 60 Year
  Sex: Female

DRUGS (4)
  1. PEG-INTRON [Suspect]
     Indication: HEPATITIS C
     Dosage: 80 MCG QW SUBCUTANEOUS
     Route: 058
     Dates: start: 20050330, end: 20050427
  2. REBETOL [Suspect]
     Indication: HEPATITIS C
     Dosage: 600-400 MG ORAL
     Route: 048
     Dates: start: 20050330, end: 20050427
  3. PEGASYS [Concomitant]
  4. MCG [Concomitant]

REACTIONS (5)
  - CEREBRAL INFARCTION [None]
  - HAEMOGLOBIN DECREASED [None]
  - LOSS OF CONSCIOUSNESS [None]
  - PLATELET COUNT ABNORMAL [None]
  - RENAL FAILURE [None]
